FAERS Safety Report 6335760-6 (Version None)
Quarter: 2009Q3

REPORT INFORMATION
  Report Type: 
  Country: None (occurrence: None)
  Receive Date: 20090828
  Receipt Date: 20090817
  Transmission Date: 20100115
  Serious: Yes (Other)
  Sender: FDA-Public Use
  Company Number: 2009AP003335

PATIENT
  Age: 56 Year
  Sex: Female

DRUGS (4)
  1. TRAMADOL HYDROCHLORIDE [Suspect]
     Dosage: 50 MG; TID; PO
     Route: 048
     Dates: start: 20090721, end: 20090701
  2. PANTOPRAZOLE SODIUM [Concomitant]
  3. PIROXICAM [Concomitant]
  4. TRAMADOL HCL [Concomitant]

REACTIONS (3)
  - DEPRESSION [None]
  - MYALGIA [None]
  - PRODUCT SUBSTITUTION ISSUE [None]
